FAERS Safety Report 4476695-3 (Version None)
Quarter: 2004Q4

REPORT INFORMATION
  Report Type: 
  Country: None (occurrence: None)
  Receive Date: 20041013
  Receipt Date: 20040928
  Transmission Date: 20050328
  Serious: Yes (Hospitalization)
  Sender: FDA-Public Use
  Company Number: S04-USA-02679-01

PATIENT
  Age: 52 Year
  Sex: Female

DRUGS (4)
  1. LEXAPRO [Suspect]
     Indication: SEASONAL AFFECTIVE DISORDER
     Dosage: 10 MG QD PO
     Route: 048
     Dates: start: 20030101, end: 20030801
  2. VIOXX [Concomitant]
  3. PROTONIX [Concomitant]
  4. LIPITOR [Concomitant]

REACTIONS (25)
  - BIPOLAR I DISORDER [None]
  - BLOOD PRESSURE INCREASED [None]
  - CONFUSIONAL STATE [None]
  - DELUSION OF GRANDEUR [None]
  - DELUSIONAL PERCEPTION [None]
  - DERMATITIS EXFOLIATIVE [None]
  - DRUG INEFFECTIVE [None]
  - ENCEPHALITIS HERPES [None]
  - ENCEPHALOPATHY [None]
  - GRANDIOSITY [None]
  - IMPULSIVE BEHAVIOUR [None]
  - LIMB INJURY [None]
  - MANIA [None]
  - MENORRHAGIA [None]
  - MENTAL DISORDER [None]
  - NAIL DISCOLOURATION [None]
  - NECK PAIN [None]
  - NUCLEAR MAGNETIC RESONANCE IMAGING BRAIN ABNORMAL [None]
  - PRURITUS [None]
  - PSYCHOTIC DISORDER [None]
  - ROAD TRAFFIC ACCIDENT [None]
  - SEXUALLY TRANSMITTED DISEASE [None]
  - TINEA PEDIS [None]
  - WEST NILE VIRAL INFECTION [None]
  - WHIPLASH INJURY [None]
